FAERS Safety Report 9082375 (Version 1)
Quarter: 2013Q1

REPORT INFORMATION
  Report Type: Report from Study
  Country: US (occurrence: US)
  Receive Date: 20130130
  Receipt Date: 20130130
  Transmission Date: 20140127
  Serious: Yes (Hospitalization)
  Sender: FDA-Public Use
  Company Number: US-ABBOTT-12P-163-0971110-00

PATIENT
  Age: 80 Year
  Sex: Male
  Weight: 106.69 kg

DRUGS (1)
  1. HUMIRA 40 MG/0.8 ML PEN [Suspect]
     Indication: CROHN^S DISEASE
     Dates: start: 2009

REACTIONS (2)
  - Colon operation [Recovered/Resolved]
  - Anorectal operation [Recovered/Resolved]
